FAERS Safety Report 5411826-X (Version None)
Quarter: 2007Q3

REPORT INFORMATION
  Report Type: 
  Country: None (occurrence: None)
  Receive Date: 20070813
  Receipt Date: 20070803
  Transmission Date: 20080115
  Serious: Yes (Other)
  Sender: FDA-Public Use
  Company Number: CA-JNJFOC-20070400212

PATIENT
  Sex: Male
  Weight: 74 kg

DRUGS (8)
  1. INFLIXIMAB [Suspect]
     Route: 042
  2. INFLIXIMAB [Suspect]
     Route: 042
  3. INFLIXIMAB [Suspect]
     Route: 042
  4. INFLIXIMAB [Suspect]
     Indication: CROHN'S DISEASE
     Route: 042
  5. METHOTREXATE [Suspect]
     Indication: CROHN'S DISEASE
     Route: 042
  6. PAXIL [Concomitant]
     Indication: DEPRESSION
     Route: 048
  7. NEXIUM [Concomitant]
     Indication: CROHN'S DISEASE
     Route: 048
  8. FERROUS SULFATE TAB [Concomitant]
     Indication: NUTRITIONAL SUPPORT
     Route: 048

REACTIONS (1)
  - BLADDER CANCER [None]
